FAERS Safety Report 7542767-X (Version None)
Quarter: 2011Q2

REPORT INFORMATION
  Report Type: 
  Country: None (occurrence: None)
  Receive Date: 20110613
  Receipt Date: 20110601
  Transmission Date: 20111010
  Serious: Yes (Death)
  Sender: FDA-Public Use
  Company Number: B0718600A

PATIENT
  Sex: Female

DRUGS (6)
  1. PAXIL [Suspect]
     Indication: DEPRESSION
     Dosage: 10MG PER DAY
     Route: 048
     Dates: start: 20110310, end: 20110318
  2. LORAZEPAM [Concomitant]
     Indication: DEPRESSION
     Route: 048
     Dates: start: 20110311
  3. CITALOPRAM HYDROBROMIDE [Concomitant]
     Route: 065
  4. MEILAX [Concomitant]
     Indication: DEPRESSION
     Dosage: 1MG PER DAY
     Route: 048
     Dates: start: 20110311
  5. TRAZODONE HYDROCHLORIDE [Concomitant]
     Indication: DEPRESSION
     Route: 048
     Dates: start: 20110311
  6. CLONAZEPAM [Concomitant]
     Indication: DEPRESSION
     Route: 048

REACTIONS (17)
  - COMA [None]
  - ASCITES [None]
  - ENCEPHALOPATHY [None]
  - PYREXIA [None]
  - JAUNDICE [None]
  - NUCHAL RIGIDITY [None]
  - HEPATIC FUNCTION ABNORMAL [None]
  - DEPRESSED LEVEL OF CONSCIOUSNESS [None]
  - ALTERED STATE OF CONSCIOUSNESS [None]
  - QUADRIPLEGIA [None]
  - BINOCULAR EYE MOVEMENT DISORDER [None]
  - BACTERAEMIA [None]
  - HEPATIC FAILURE [None]
  - DIARRHOEA [None]
  - MULTI-ORGAN FAILURE [None]
  - HYPOAESTHESIA [None]
  - EATING DISORDER [None]
